FAERS Safety Report 9506062 (Version 1)
Quarter: 2013Q1

REPORT INFORMATION
  Report Type: Spontaneous
  Country: US (occurrence: None)
  Receive Date: 20130305
  Receipt Date: 20130305
  Transmission Date: 20140127
  Serious: Yes (Hospitalization)
  Sender: FDA-Public Use
  Company Number: 1000040421

PATIENT
  Age: 64 Year
  Sex: Male
  Weight: 104.3 kg

DRUGS (11)
  1. DALIRESP (ROFLUMILAST) (500 MICROGRAM, TABLETS) [Suspect]
     Indication: CHRONIC OBSTRUCTIVE PULMONARY DISEASE
     Route: 048
     Dates: start: 20121105, end: 201211
  2. PERFOROMIST (FORMOTEROL FUMARATE) [Concomitant]
  3. PULMICORT (BUDESONIDE) [Concomitant]
  4. COUMADIN (WARFARIN) [Concomitant]
  5. ZESTRIL (LISINOPRIL) [Concomitant]
  6. PRAVACHOL (PRAVASTATIN SODIUM) [Concomitant]
  7. VENTOLIN (ALBUTEROL SULFATE) [Concomitant]
  8. ACETAMINOPHEN (PARACETAMOL) [Concomitant]
  9. DUONEB (COMBIVENT) [Concomitant]
  10. LOPRESSOR (METOPROLOL TARTRATE) [Concomitant]
  11. CHANTIX (VARENICLINE TARTRATE) [Concomitant]

REACTIONS (1)
  - Pancreatitis [None]
